FAERS Safety Report 4395302-1 (Version None)
Quarter: 2004Q2

REPORT INFORMATION
  Report Type: 
  Country: None (occurrence: None)
  Receive Date: 20040621
  Receipt Date: 20020326
  Transmission Date: 20050107
  Serious: Yes (Other)
  Sender: FDA-Public Use
  Company Number: USA-2002-0000560

PATIENT
  Age: 40 Year
  Sex: Male
  Weight: 126.1 kg

DRUGS (24)
  1. OXYCONTIN [Suspect]
     Indication: PAIN
     Dosage: 20 MG, BID, ORAL
     Route: 048
     Dates: start: 20011026, end: 20011102
  2. OXYCONTIN [Suspect]
     Indication: PAIN
     Dosage: 40 MG, Q6H, ORAL
     Route: 048
     Dates: start: 20000724
  3. OXYCONTIN [Suspect]
     Indication: PAIN
     Dosage: 80 MG, BID, ORAL
     Route: 048
     Dates: start: 19990911, end: 20010101
  4. OXYCODONE HCL [Suspect]
     Indication: PAIN
     Dosage: 5 MG, PRN, ORAL
     Route: 048
     Dates: start: 19990911
  5. LORCET-HD [Concomitant]
  6. VIOXX [Concomitant]
  7. AMBIEN [Concomitant]
  8. ULTRAM [Concomitant]
  9. CELEBREX [Concomitant]
  10. SOMA [Concomitant]
  11. NEURONTIN [Concomitant]
  12. NORFLEX [Concomitant]
  13. FUROSEMIDE [Concomitant]
  14. CELEXA [Concomitant]
  15. TRAZODONE HCL [Concomitant]
  16. MOTRIN [Concomitant]
  17. ROBAXIN [Concomitant]
  18. ZANAFLEX [Concomitant]
  19. PAXIL [Concomitant]
  20. SENOKOT [Concomitant]
  21. VIAGRA [Concomitant]
  22. ELAVIL [Concomitant]
  23. FLEXERIL [Concomitant]
  24. VICODIN [Concomitant]

REACTIONS (20)
  - ANHEDONIA [None]
  - CHEST DISCOMFORT [None]
  - CHEST WALL PAIN [None]
  - CONSTIPATION [None]
  - DEPRESSION [None]
  - DRUG ABUSER [None]
  - DRUG DEPENDENCE [None]
  - DRUG INEFFECTIVE [None]
  - DRUG WITHDRAWAL SYNDROME [None]
  - DYSPNOEA [None]
  - EMOTIONAL DISTRESS [None]
  - INCREASED APPETITE [None]
  - INSOMNIA [None]
  - MUSCLE SPASMS [None]
  - NIGHT SWEATS [None]
  - PAIN [None]
  - PALPITATIONS [None]
  - ROAD TRAFFIC ACCIDENT [None]
  - SEXUAL DYSFUNCTION [None]
  - WRIST FRACTURE [None]
